FAERS Safety Report 14634571 (Version 1)
Quarter: 2018Q1

REPORT INFORMATION
  Report Type: Spontaneous
  Country: US (occurrence: US)
  Receive Date: 20180314
  Receipt Date: 20180314
  Transmission Date: 20180509
  Serious: No
  Sender: FDA-Public Use
  Company Number: US-BAXTER-2017BAX037272

PATIENT
  Age: 54 Year
  Sex: Male
  Weight: 112.59 kg

DRUGS (1)
  1. CIPROFLOXACIN INJECTION WITH 5% DEXTROSE INJECTION, USP [Suspect]
     Active Substance: CIPROFLOXACIN
     Indication: LITHOTRIPSY
     Route: 042
     Dates: start: 20170810, end: 20170810

REACTIONS (1)
  - Infusion site reaction [Recovered/Resolved]
